FAERS Safety Report 18325758 (Version 1)
Quarter: 2020Q3

REPORT INFORMATION
  Report Type: Spontaneous
  Country: HR (occurrence: HR)
  Receive Date: 20200929
  Receipt Date: 20200929
  Transmission Date: 20201103
  Serious: Yes (Life-Threatening)
  Sender: FDA-Public Use
  Company Number: NVSC2020HR263164

PATIENT
  Age: 8 Month
  Sex: Female
  Weight: 7 kg

DRUGS (3)
  1. PARACETAMOL [Suspect]
     Active Substance: ACETAMINOPHEN
     Indication: PYREXIA
     Dosage: 142.9 MG/KG
     Route: 042
     Dates: start: 2020, end: 2020
  2. MEROPENEM. [Concomitant]
     Active Substance: MEROPENEM
     Indication: UROSEPSIS
     Dosage: UNK
     Route: 042
     Dates: start: 2020
  3. CEFTRIAXON [Concomitant]
     Active Substance: CEFTRIAXONE
     Indication: URINARY TRACT INFECTION
     Dosage: UNK
     Route: 042
     Dates: start: 2020

REACTIONS (4)
  - Dose calculation error [Recovered/Resolved]
  - Hypothermia [Recovered/Resolved]
  - Medication error [Recovered/Resolved]
  - Accidental overdose [Recovered/Resolved]

NARRATIVE: CASE EVENT DATE: 2020
